FAERS Safety Report 14831976 (Version 1)
Quarter: 2018Q2

REPORT INFORMATION
  Report Type: Report from Study
  Country: IT (occurrence: IT)
  Receive Date: 20180501
  Receipt Date: 20180501
  Transmission Date: 20180711
  Serious: Yes (Other)
  Sender: FDA-Public Use
  Company Number: IT-BAYER-2018-079346

PATIENT
  Age: 68 Year
  Sex: Male

DRUGS (5)
  1. INFLUENZA VIRUS VACCINE [Interacting]
     Active Substance: INFLUENZA VIRUS VACCINE
     Dosage: UNK
  2. SIMVASTATIN. [Interacting]
     Active Substance: SIMVASTATIN
     Dosage: UNK
  3. ACETYLSALICYLIC ACID [Suspect]
     Active Substance: ASPIRIN
     Dosage: UNK
  4. BEZAFIBRATE [Interacting]
     Active Substance: BEZAFIBRATE
     Dosage: UNK
  5. CERIVASTATIN [Interacting]
     Active Substance: CERIVASTATIN
     Dosage: UNK

REACTIONS (11)
  - Acute kidney injury [Recovered/Resolved]
  - Blood urea increased [Recovered/Resolved]
  - Muscular weakness [None]
  - Drug interaction [None]
  - Hyperkalaemia [Recovered/Resolved]
  - Blood creatinine increased [Recovered/Resolved]
  - Laboratory test abnormal [Recovered/Resolved]
  - Rhabdomyolysis [Recovered/Resolved]
  - Myalgia [Recovered/Resolved]
  - Blood creatine phosphokinase increased [Recovered/Resolved]
  - Myoglobinuria [Recovered/Resolved]
